FAERS Safety Report 15892167 (Version 1)
Quarter: 2019Q1

REPORT INFORMATION
  Report Type: Report from Study
  Country: US (occurrence: US)
  Receive Date: 20190130
  Receipt Date: 20190130
  Transmission Date: 20190417
  Serious: No
  Sender: FDA-Public Use
  Company Number: US-EXELIXIS-CABO-18014432

PATIENT
  Age: 67 Year
  Sex: Male

DRUGS (4)
  1. CABOMETYX [Suspect]
     Active Substance: CABOZANTINIB S-MALATE
     Indication: PROSTATE CANCER
     Dosage: 60 MG, QD IN MORNING WITHOUT FOOD
     Dates: start: 20180521, end: 20180611
  2. CABOMETYX [Suspect]
     Active Substance: CABOZANTINIB S-MALATE
     Dosage: 60 MG, MONDAY, WEDNESDAY AND FRIDAY
     Dates: start: 20180625
  3. CABOMETYX [Suspect]
     Active Substance: CABOZANTINIB S-MALATE
     Dosage: 60 MG, 5 DAYS FOLLOWED BY TWO DAYS OFF
     Dates: start: 20180616, end: 201806
  4. FENTANYL. [Concomitant]
     Active Substance: FENTANYL

REACTIONS (6)
  - Fatigue [Recovering/Resolving]
  - Dyspnoea [Recovering/Resolving]
  - Off label use [Unknown]
  - Retching [Recovering/Resolving]
  - Oral pain [Recovering/Resolving]
  - Metastases to bone [Unknown]

NARRATIVE: CASE EVENT DATE: 20180611
